FAERS Safety Report 6847289-7 (Version None)
Quarter: 2010Q3

REPORT INFORMATION
  Report Type: 
  Country: None (occurrence: None)
  Receive Date: 20100713
  Receipt Date: 20100701
  Transmission Date: 20110219
  Serious: Yes (Other)
  Sender: FDA-Public Use
  Company Number: 015117

PATIENT
  Age: 18 Month
  Sex: Female

DRUGS (4)
  1. LEVETIRACETAM [Suspect]
  2. METHYLPREDNISOLONE [Suspect]
     Indication: TONIC CONVULSION
     Dosage: (20MG/KG IN THE MORNING), (NEXT CYCLE)
  3. PHENOBARBITAL TAB [Suspect]
  4. OXCARBAZEPINE [Suspect]

REACTIONS (3)
  - NO THERAPEUTIC RESPONSE [None]
  - SINUS BRADYCARDIA [None]
  - TONIC CONVULSION [None]
